FAERS Safety Report 9649579 (Version 6)
Quarter: 2015Q3

REPORT INFORMATION
  Report Type: Report from Study
  Country: CA (occurrence: CA)
  Receive Date: 20131028
  Receipt Date: 20150820
  Transmission Date: 20151125
  Serious: Yes (Other)
  Sender: FDA-Public Use
  Company Number: CA-ROCHE-1295022

PATIENT
  Sex: Male
  Weight: 80 kg

DRUGS (11)
  1. PREDNISONE. [Concomitant]
     Active Substance: PREDNISONE
  2. COVERSYL [Concomitant]
     Active Substance: PERINDOPRIL
  3. LEFLUNOMIDE. [Concomitant]
     Active Substance: LEFLUNOMIDE
     Route: 065
  4. ATORVASTATIN [Concomitant]
     Active Substance: ATORVASTATIN
  5. FUROSEMIDE. [Concomitant]
     Active Substance: FUROSEMIDE
  6. RITUXAN [Suspect]
     Active Substance: RITUXIMAB
     Dosage: DAY 1, DAY 15 (FIRST RPAP DOSE),?MOST RECENT DOSE ON 17/MAR/2014, 20/OCT/2014
     Route: 042
     Dates: start: 20140303
  7. ARAVA [Concomitant]
     Active Substance: LEFLUNOMIDE
  8. ASPIRIN. [Concomitant]
     Active Substance: ASPIRIN
  9. RITUXAN [Suspect]
     Active Substance: RITUXIMAB
     Indication: RHEUMATOID ARTHRITIS
     Route: 042
     Dates: start: 2010
  10. PLAQUENIL [Concomitant]
     Active Substance: HYDROXYCHLOROQUINE SULFATE
  11. BISOPROLOL [Concomitant]
     Active Substance: BISOPROLOL

REACTIONS (4)
  - Rheumatoid arthritis [Not Recovered/Not Resolved]
  - Costochondritis [Not Recovered/Not Resolved]
  - Fatigue [Unknown]
  - Joint swelling [Not Recovered/Not Resolved]

NARRATIVE: CASE EVENT DATE: 2012
